FAERS Safety Report 8105421-1 (Version None)
Quarter: 2012Q1

REPORT INFORMATION
  Report Type: 
  Country: None (occurrence: None)
  Receive Date: 20120201
  Receipt Date: 20120119
  Transmission Date: 20120608
  Serious: Yes (Hospitalization, Other)
  Sender: FDA-Public Use
  Company Number: US-ELI_LILLY_AND_COMPANY-US201201006698

PATIENT
  Sex: Female

DRUGS (4)
  1. RECLAST [Concomitant]
  2. INSULIN [Concomitant]
  3. FORTEO [Suspect]
     Indication: OSTEOPOROSIS
     Dosage: 20 UG, QD
     Dates: start: 20110901, end: 20110901
  4. PREDNISONE TAB [Concomitant]

REACTIONS (7)
  - NERVOUSNESS [None]
  - INSOMNIA [None]
  - HOSPITALISATION [None]
  - PYREXIA [None]
  - HEART RATE INCREASED [None]
  - DEPRESSED MOOD [None]
  - INTENTIONAL DRUG MISUSE [None]
